FAERS Safety Report 23619421 (Version 1)
Quarter: 2024Q1

REPORT INFORMATION
  Report Type: Report from Study
  Country: RO (occurrence: RO)
  Receive Date: 20240311
  Receipt Date: 20240311
  Transmission Date: 20240410
  Serious: Yes (Hospitalization, Other)
  Sender: FDA-Public Use
  Company Number: RO-ABBVIE-5487453

PATIENT
  Age: 65 Year
  Sex: Female

DRUGS (3)
  1. GLECAPREVIR\PIBRENTASVIR [Suspect]
     Active Substance: GLECAPREVIR\PIBRENTASVIR
     Indication: Chronic hepatitis C
     Dosage: 300 MG/120 MG, MAVIRET TREATMENT WAS COMPLETED ON 21 DEC 2023, IT WAS NOT INTERRUPTED.
     Route: 048
     Dates: start: 20231027, end: 20231221
  2. BISOPROLOL FUMARATE [Concomitant]
     Active Substance: BISOPROLOL FUMARATE
     Indication: Cardiac disorder
     Dosage: START DATE TEXT: PRIOR MAVIRET THERAPY
     Route: 048
  3. PERINDOPRIL [Concomitant]
     Active Substance: PERINDOPRIL
     Indication: Hypertension
     Dosage: START DATE TEXT: PRIOR MAVIRET THERAPY
     Route: 048

REACTIONS (3)
  - Gastric cancer [Unknown]
  - Abdominal pain upper [Recovering/Resolving]
  - Vomiting [Recovered/Resolved]

NARRATIVE: CASE EVENT DATE: 20231031
